FAERS Safety Report 4367523-5 (Version None)
Quarter: 2004Q2

REPORT INFORMATION
  Report Type: 
  Country: None (occurrence: None)
  Receive Date: 20040601
  Receipt Date: 20040205
  Transmission Date: 20050107
  Serious: Yes (Other)
  Sender: FDA-Public Use
  Company Number: US-ROCHE-358113

PATIENT
  Age: 44 Year
  Sex: Female
  Weight: 126.9 kg

DRUGS (6)
  1. PEG-INTERFERON ALFA 2A (RO 25-8310) [Suspect]
     Route: 058
     Dates: start: 20000926, end: 20040202
  2. PEG-INTERFERON ALFA 2A (RO 25-8310) [Suspect]
     Route: 058
  3. RIBAVIRIN [Suspect]
     Route: 048
     Dates: start: 20000926
  4. LEVOXYL [Concomitant]
  5. AMITRIPTYLINE HCL [Concomitant]
  6. UNKNOWN MEDICATION [Concomitant]
     Dosage: REPORTED AS FERROUS SEQUELS.

REACTIONS (10)
  - ABDOMINAL PAIN [None]
  - B-CELL LYMPHOMA STAGE IV [None]
  - HEPATIC CIRRHOSIS [None]
  - HEPATITIS CHRONIC ACTIVE [None]
  - METASTASES TO BONE [None]
  - METASTASES TO LIVER [None]
  - OSTEOARTHRITIS [None]
  - SPINAL OSTEOARTHRITIS [None]
  - SPLENIC NEOPLASM MALIGNANCY UNSPECIFIED [None]
  - SPLENOMEGALY [None]
